FAERS Safety Report 4316893-2 (Version None)
Quarter: 2004Q1

REPORT INFORMATION
  Report Type: 
  Country: None (occurrence: None)
  Receive Date: 20040308
  Receipt Date: 20031229
  Transmission Date: 20041129
  Serious: Yes (Hospitalization)
  Sender: FDA-Public Use
  Company Number: PHEH2003US11233

PATIENT
  Age: 11 Year
  Sex: Male
  Weight: 49 kg

DRUGS (2)
  1. GLEEVEC [Suspect]
     Indication: EWING'S SARCOMA
     Dosage: ORAL
     Route: 048
     Dates: start: 20030601
  2. GLEEVEC [Suspect]
     Indication: EWING'S SARCOMA
     Dosage: 440 MG/M2, BID, ORAL
     Route: 048
     Dates: start: 20031204

REACTIONS (3)
  - ABDOMINAL PAIN [None]
  - CONSTIPATION [None]
  - DISEASE PROGRESSION [None]
